FAERS Safety Report 8387897-8 (Version None)
Quarter: 2012Q2

REPORT INFORMATION
  Report Type: 
  Country: None (occurrence: None)
  Receive Date: 20120525
  Receipt Date: 20120524
  Transmission Date: 20120825
  Serious: Yes (Life-Threatening)
  Sender: FDA-Public Use
  Company Number: DE-B.I. PHARMACEUTICALS,INC./RIDGEFIELD-2012-DE-01349DE

PATIENT
  Age: 89 Year
  Sex: Female
  Weight: 53 kg

DRUGS (5)
  1. FUROSEMIDE [Concomitant]
     Indication: HYPERTENSIVE HEART DISEASE
     Dosage: 40 MG
     Route: 048
     Dates: start: 20111001
  2. RAMIPRIL [Concomitant]
     Indication: HYPERTENSIVE HEART DISEASE
     Dosage: 5 MG
     Route: 048
     Dates: start: 20111001
  3. PRADAXA [Suspect]
     Indication: ATRIAL FIBRILLATION
     Dosage: 220 MG
     Route: 048
     Dates: start: 20111025, end: 20111104
  4. HCT 25 [Concomitant]
     Indication: HYPERTENSIVE HEART DISEASE
     Route: 048
     Dates: start: 20111001
  5. METOPROLOL SUCCINATE [Concomitant]
     Indication: HYPERTENSIVE HEART DISEASE
     Route: 048
     Dates: start: 20111001

REACTIONS (2)
  - VENTRICULAR EXTRASYSTOLES [None]
  - VENTRICULAR TACHYCARDIA [None]
